FAERS Safety Report 16741259 (Version 1)
Quarter: 2019Q3

REPORT INFORMATION
  Report Type: Report from Study
  Country: FR (occurrence: FR)
  Receive Date: 20190826
  Receipt Date: 20190826
  Transmission Date: 20191005
  Serious: Yes (Death, Other)
  Sender: FDA-Public Use
  Company Number: FR-ROCHE-2387416

PATIENT

DRUGS (6)
  1. BASILIXIMAB [Suspect]
     Active Substance: BASILIXIMAB
     Indication: PROPHYLAXIS AGAINST TRANSPLANT REJECTION
     Dosage: ON DAYS 0 AND 4
     Route: 065
  2. MYCOPHENOLATE MOFETIL. [Suspect]
     Active Substance: MYCOPHENOLATE MOFETIL
     Indication: PROPHYLAXIS AGAINST TRANSPLANT REJECTION
     Route: 065
  3. ANTITHYMOCYTE IMMUNOGLOBULIN (RABBIT) [Suspect]
     Active Substance: LAPINE T-LYMPHOCYTE IMMUNE GLOBULIN
     Indication: PROPHYLAXIS AGAINST TRANSPLANT REJECTION
     Dosage: ON DAYS 0 AND 1
     Route: 065
  4. TACROLIMUS. [Suspect]
     Active Substance: TACROLIMUS
     Indication: PROPHYLAXIS AGAINST TRANSPLANT REJECTION
     Route: 065
  5. PREDNISONE. [Suspect]
     Active Substance: PREDNISONE
     Indication: PROPHYLAXIS AGAINST TRANSPLANT REJECTION
     Dosage: FOR THE FIRST 2 WEEKS WAS GRADUALLY DECREASED AND FINALLY WITHDRAWN DURING THE FIRST YEAR POST-TRANS
     Route: 065
  6. METHYLPREDNISOLONE. [Suspect]
     Active Substance: METHYLPREDNISOLONE
     Indication: PROPHYLAXIS AGAINST TRANSPLANT REJECTION
     Dosage: PRE- AND POSTOPERATIVELY
     Route: 065

REACTIONS (12)
  - Cytomegalovirus syndrome [Unknown]
  - Skin cancer [Unknown]
  - Viraemia [Unknown]
  - Neoplasm malignant [Unknown]
  - Opportunistic infection [Unknown]
  - Polyomavirus-associated nephropathy [Unknown]
  - Pneumonitis [Unknown]
  - Renal graft infection [Unknown]
  - Post transplant lymphoproliferative disorder [Unknown]
  - Bacterial infection [Unknown]
  - Neoplasm malignant [Fatal]
  - Cytomegalovirus infection [Unknown]
